FAERS Safety Report 5379655-3 (Version None)
Quarter: 2007Q3

REPORT INFORMATION
  Report Type: 
  Country: None (occurrence: None)
  Receive Date: 20070706
  Receipt Date: 20070625
  Transmission Date: 20080115
  Serious: Yes (Other)
  Sender: FDA-Public Use
  Company Number: PHBS2007IT10638

PATIENT
  Age: 73 Year
  Sex: Female

DRUGS (1)
  1. FEMARA [Suspect]
     Indication: BREAST CANCER
     Dosage: 2.5 MG/D
     Route: 048
     Dates: start: 20041201, end: 20070301

REACTIONS (3)
  - GASTRIC CANCER [None]
  - HEPATIC LESION [None]
  - HEPATIC MASS [None]
